FAERS Safety Report 6910485-4 (Version None)
Quarter: 2010Q3

REPORT INFORMATION
  Report Type: 
  Country: None (occurrence: None)
  Receive Date: 20100806
  Receipt Date: 20100722
  Transmission Date: 20110219
  Serious: Yes (Life-Threatening, Other)
  Sender: FDA-Public Use
  Company Number: PHHY2010FR48366

PATIENT
  Sex: Female
  Weight: 76 kg

DRUGS (1)
  1. EXFORGE [Suspect]
     Dosage: 10/160 1 DF DAILY
     Dates: start: 20100521, end: 20100612

REACTIONS (13)
  - ANGIOEDEMA [None]
  - CELL DEATH [None]
  - CHOLESTASIS [None]
  - DRY MOUTH [None]
  - DYSPNOEA [None]
  - EYELID OEDEMA [None]
  - FACE OEDEMA [None]
  - LIVER DISORDER [None]
  - PYREXIA [None]
  - TONGUE DISORDER [None]
  - TONGUE DRY [None]
  - TRANSAMINASES INCREASED [None]
  - VOMITING [None]
